FAERS Safety Report 6794204-0 (Version None)
Quarter: 2010Q2

REPORT INFORMATION
  Report Type: 
  Country: None (occurrence: None)
  Receive Date: 20100625
  Receipt Date: 20100618
  Transmission Date: 20101027
  Serious: Yes (Other)
  Sender: FDA-Public Use
  Company Number: FR-BIOGENIDEC-2010BI019714

PATIENT
  Age: 51 Year
  Sex: Female

DRUGS (13)
  1. TYSABRI [Suspect]
     Indication: MULTIPLE SCLEROSIS
     Route: 042
     Dates: start: 20070809, end: 20100420
  2. ANTIDEPRESSANTS (NOS) [Concomitant]
  3. ALPRAZOLAM [Concomitant]
  4. ANTI-INFECTIVE (NOS) [Concomitant]
  5. MUSCLE RELAXANT (NOS) [Concomitant]
  6. ANALGESIC [Concomitant]
  7. ANTICOAGULANT (NOS) [Concomitant]
  8. NEUROLEPTIC (NOS) [Concomitant]
  9. PREGABALINE [Concomitant]
     Indication: DEPRESSION
  10. MODAFINIL [Concomitant]
     Indication: DEPRESSION
  11. LEXOMIL [Concomitant]
     Indication: DEPRESSION
  12. XATRAL [Concomitant]
     Indication: DEPRESSION
  13. PROZAC [Concomitant]
     Indication: DEPRESSION

REACTIONS (1)
  - PROGRESSIVE MULTIFOCAL LEUKOENCEPHALOPATHY [None]
